FAERS Safety Report 7655893-1 (Version None)
Quarter: 2011Q3

REPORT INFORMATION
  Report Type: 
  Country: None (occurrence: None)
  Receive Date: 20110804
  Receipt Date: 20110804
  Transmission Date: 20111222
  Serious: Yes (Hospitalization)
  Sender: FDA-Public Use
  Company Number: None

PATIENT
  Age: 62 Year
  Sex: Male
  Weight: 103.4 kg

DRUGS (7)
  1. ALLOPURINOL [Concomitant]
  2. ZOFRAN [Concomitant]
  3. BENDAMUSTINE [Suspect]
     Indication: CHRONIC LYMPHOCYTIC LEUKAEMIA
     Dosage: 200 MG
     Route: 041
  4. METOPROLOL TARTRATE [Concomitant]
  5. RITUXAN [Concomitant]
     Indication: CHRONIC LYMPHOCYTIC LEUKAEMIA
     Dosage: 900 MG
     Route: 041
  6. ASPIRIN [Concomitant]
  7. FLUTICASONE [Concomitant]

REACTIONS (12)
  - ERYTHEMA [None]
  - PYREXIA [None]
  - DECREASED APPETITE [None]
  - RASH [None]
  - ORAL DISORDER [None]
  - FEBRILE NEUTROPENIA [None]
  - COUGH [None]
  - FATIGUE [None]
  - OROPHARYNGEAL PAIN [None]
  - CHILLS [None]
  - ACQUIRED DIAPHRAGMATIC EVENTRATION [None]
  - ORAL MUCOSAL ERYTHEMA [None]
